FAERS Safety Report 9478347 (Version 3)
Quarter: 2013Q4

REPORT INFORMATION
  Report Type: Spontaneous
  Country: BE (occurrence: BE)
  Receive Date: 20130827
  Receipt Date: 20131031
  Transmission Date: 20140711
  Serious: Yes (Death, Hospitalization)
  Sender: FDA-Public Use
  Company Number: BE-JNJFOC-20130812135

PATIENT
  Age: 55 Year
  Sex: Male
  Weight: 72 kg

DRUGS (8)
  1. REOPRO [Suspect]
     Indication: ACUTE MYOCARDIAL INFARCTION
     Dosage: BOLUS DOSE(9CC) THEN PERFUSION (3,2 CC/HOUR) IV. PERFUSION
     Route: 042
     Dates: start: 20130814, end: 20130814
  2. REOPRO [Suspect]
     Indication: ACUTE CORONARY SYNDROME
     Dosage: BOLUS DOSE(9CC) THEN PERFUSION (3,2 CC/HOUR) IV. PERFUSION
     Route: 042
     Dates: start: 20130814, end: 20130814
  3. EFFIENT [Suspect]
     Indication: ACUTE CORONARY SYNDROME
     Dosage: DOSE:BOLUS 60MG THEN 10MG = TOTAL DOSE 70 MG
     Route: 065
     Dates: start: 20130814, end: 20130814
  4. EFFIENT [Suspect]
     Indication: ACUTE MYOCARDIAL INFARCTION
     Dosage: DOSE:BOLUS 60MG THEN 10MG = TOTAL DOSE 70 MG
     Route: 065
     Dates: start: 20130814, end: 20130814
  5. HEPARIN [Suspect]
     Indication: ACUTE CORONARY SYNDROME
     Dosage: LOADING DOSE
     Route: 042
     Dates: start: 20130814, end: 20130814
  6. HEPARIN [Suspect]
     Indication: ACUTE MYOCARDIAL INFARCTION
     Dosage: LOADING DOSE
     Route: 042
     Dates: start: 20130814, end: 20130814
  7. ASA [Suspect]
     Indication: ACUTE CORONARY SYNDROME
     Dosage: 500MG THEN 100MG 2 TIMES A DAY = TOTAL DOSE 600 MG
     Route: 048
     Dates: start: 20130814, end: 20130814
  8. ASA [Suspect]
     Indication: ACUTE MYOCARDIAL INFARCTION
     Dosage: 500MG THEN 100MG 2 TIMES A DAY = TOTAL DOSE 600 MG
     Route: 048
     Dates: start: 20130814, end: 20130814

REACTIONS (3)
  - Cerebral haematoma [Fatal]
  - Loss of consciousness [Unknown]
  - Mydriasis [Unknown]
